FAERS Safety Report 6532537-3 (Version None)
Quarter: 2010Q1

REPORT INFORMATION
  Report Type: 
  Country: None (occurrence: None)
  Receive Date: 20100104
  Receipt Date: 20091201
  Transmission Date: 20100710
  Serious: Yes (Death, Hospitalization)
  Sender: FDA-Public Use
  Company Number: 091116-0001173

PATIENT
  Age: 19 Year
  Sex: Female

DRUGS (2)
  1. ATRYN [Suspect]
     Indication: ANTITHROMBIN III DECREASED
     Dosage: IV
     Route: 042
     Dates: start: 20091018, end: 20091019
  2. CYCLOSPORINE [Concomitant]

REACTIONS (9)
  - ACUTE RESPIRATORY DISTRESS SYNDROME [None]
  - CIRCULATORY COLLAPSE [None]
  - COAGULOPATHY [None]
  - CONDITION AGGRAVATED [None]
  - CONTINUOUS HAEMODIAFILTRATION [None]
  - HEART TRANSPLANT REJECTION [None]
  - MULTI-ORGAN FAILURE [None]
  - PANCYTOPENIA [None]
  - RENAL FAILURE ACUTE [None]
